FAERS Safety Report 9928714 (Version 8)
Quarter: 2015Q1

REPORT INFORMATION
  Report Type: Spontaneous
  Country: US (occurrence: US)
  Receive Date: 20140227
  Receipt Date: 20150122
  Transmission Date: 20150721
  Serious: Yes (Death, Life-Threatening, Hospitalization, Congenital Anomaly, Other)
  Sender: FDA-Public Use
  Company Number: US-ELI_LILLY_AND_COMPANY-US201402007635

PATIENT

DRUGS (8)
  1. PROZAC [Suspect]
     Active Substance: FLUOXETINE HYDROCHLORIDE
     Dosage: 20 MG, EACH MORNING
     Route: 064
     Dates: start: 20030820
  2. TYLENOL                                 /SCH/ [Concomitant]
     Indication: PAIN
     Dosage: 325 MG, PRN
     Route: 064
  3. PROZAC [Suspect]
     Active Substance: FLUOXETINE HYDROCHLORIDE
     Indication: DEPRESSION
     Dosage: 10 MG, UNKNOWN
     Route: 064
  4. PROZAC [Suspect]
     Active Substance: FLUOXETINE HYDROCHLORIDE
     Dosage: 30 MG, UNKNOWN
     Route: 064
  5. PROZAC [Suspect]
     Active Substance: FLUOXETINE HYDROCHLORIDE
     Dosage: 10 MG, EACH MORNING
     Route: 064
     Dates: start: 20030813
  6. PRENATAL VITAMINS                  /01549301/ [Concomitant]
     Active Substance: VITAMINS
     Route: 064
  7. PROVENTIL                               /USA/ [Concomitant]
     Dosage: UNK, PRN
     Route: 064
  8. VISTARIL [Concomitant]
     Active Substance: HYDROXYZINE PAMOATE
     Dosage: 100 MG, UNKNOWN
     Route: 064

REACTIONS (45)
  - Neonatal tachypnoea [Unknown]
  - Peripheral ischaemia [Unknown]
  - Right atrial dilatation [Unknown]
  - Ear infection [Unknown]
  - Respiratory tract malformation [Unknown]
  - Apnoea neonatal [Unknown]
  - Foetal distress syndrome [Unknown]
  - Cardio-respiratory arrest [Fatal]
  - Pleural effusion [Unknown]
  - Patent ductus arteriosus [Unknown]
  - Congenital mitral valve stenosis [Unknown]
  - Adrenal haemorrhage [Unknown]
  - Multi-organ disorder [Fatal]
  - Vena cava thrombosis [Unknown]
  - Atrial septal defect [Unknown]
  - Metabolic acidosis [Unknown]
  - Vomiting [Unknown]
  - Gastrointestinal haemorrhage [Unknown]
  - Premature baby [Unknown]
  - Hypoplastic left heart syndrome [Unknown]
  - Disseminated intravascular coagulation [Unknown]
  - Superior vena cava syndrome [Unknown]
  - Pneumothorax [Unknown]
  - Congenital aortic valve stenosis [Unknown]
  - Congenital tricuspid valve incompetence [Unknown]
  - Pericardial haemorrhage [Unknown]
  - Right ventricular hypertrophy [Unknown]
  - Myoclonus [Unknown]
  - Cardiomegaly [Unknown]
  - Feeding disorder neonatal [Unknown]
  - Pericardial effusion [Unknown]
  - Hyperbilirubinaemia [Unknown]
  - Bradycardia [Unknown]
  - Bacterial sepsis [Unknown]
  - Serratia infection [Unknown]
  - Congenital aortic atresia [Unknown]
  - Gastrooesophageal reflux disease [Unknown]
  - Hypotension [Unknown]
  - Foetal hypokinesia [Unknown]
  - Mitral valve atresia [Unknown]
  - Dilatation ventricular [Unknown]
  - Haematochezia [Unknown]
  - Cyanosis [Unknown]
  - Diarrhoea haemorrhagic [Unknown]
  - Foetal exposure during pregnancy [Unknown]
